FAERS Safety Report 11675142 (Version 1)
Quarter: 2015Q4

REPORT INFORMATION
  Report Type: Spontaneous
  Country: NL (occurrence: NL)
  Receive Date: 20151028
  Receipt Date: 20151028
  Transmission Date: 20160304
  Serious: Yes (Other)
  Sender: FDA-Public Use
  Company Number: PHHY2015NL135283

PATIENT
  Sex: Female
  Weight: 75 kg

DRUGS (3)
  1. PRIMPERAN [Concomitant]
     Active Substance: METOCLOPRAMIDE HYDROCHLORIDE
     Indication: HYPEREMESIS GRAVIDARUM
     Route: 065
     Dates: start: 20150625
  2. EMESAFENE [Concomitant]
     Active Substance: MECLIZINE\PYRIDOXINE
     Indication: HYPEREMESIS GRAVIDARUM
     Dosage: UNK (3DD1)
     Route: 065
     Dates: start: 20150625, end: 20150911
  3. ZOFRAN [Suspect]
     Active Substance: ONDANSETRON HYDROCHLORIDE
     Indication: HYPEREMESIS GRAVIDARUM
     Dosage: 4 MG, UNK (2DD1)
     Route: 065
     Dates: start: 20150709, end: 20150911

REACTIONS (1)
  - Foetal death [Unknown]

NARRATIVE: CASE EVENT DATE: 20150911
